FAERS Safety Report 6644256-3 (Version None)
Quarter: 2010Q1

REPORT INFORMATION
  Report Type: 
  Country: None (occurrence: None)
  Receive Date: 20100322
  Receipt Date: 20100312
  Transmission Date: 20100710
  Serious: Yes (Hospitalization)
  Sender: FDA-Public Use
  Company Number: US-WYE-H14108810

PATIENT
  Sex: Male

DRUGS (3)
  1. MYLOTARG [Suspect]
     Indication: ACUTE LYMPHOCYTIC LEUKAEMIA
     Route: 042
     Dates: start: 20100310, end: 20100310
  2. MYLOTARG [Suspect]
     Route: 042
     Dates: start: 20091201, end: 20091201
  3. MITOXANTRONE [Concomitant]
     Indication: ACUTE LYMPHOCYTIC LEUKAEMIA
     Dosage: ^RECEIVED 2 DOSES^
     Route: 042
     Dates: start: 20100307, end: 20100301

REACTIONS (6)
  - ACCIDENTAL OVERDOSE [None]
  - CHILLS [None]
  - HEPATIC ENZYME INCREASED [None]
  - INCORRECT DOSE ADMINISTERED [None]
  - PYREXIA [None]
  - WRONG TECHNIQUE IN DRUG USAGE PROCESS [None]
